FAERS Safety Report 7133455-2 (Version None)
Quarter: 2010Q4

REPORT INFORMATION
  Report Type: 
  Country: None (occurrence: None)
  Receive Date: 20101202
  Receipt Date: 20101202
  Transmission Date: 20110411
  Serious: Yes (Death)
  Sender: FDA-Public Use
  Company Number: MX-B.I. PHARMACEUTICALS,INC./RIDGEFIELD-2010-RA-00484MX

PATIENT
  Age: 82 Year
  Sex: Female
  Weight: 42 kg

DRUGS (6)
  1. DABIGATRAN ETEXILATE [Suspect]
     Indication: THROMBOSIS PROPHYLAXIS
     Dosage: 220 MG
     Route: 048
     Dates: start: 20101015
  2. ISOSORBIDE DINITRATE [Concomitant]
     Indication: ISCHAEMIC CARDIOMYOPATHY
     Dosage: 5 MG
     Route: 048
  3. LASILACTON [Concomitant]
     Indication: ISCHAEMIC CARDIOMYOPATHY
     Route: 048
  4. COMBIVENT [Concomitant]
     Indication: CHRONIC OBSTRUCTIVE PULMONARY DISEASE
     Route: 055
  5. ENALAPRIL MALEATE [Concomitant]
     Indication: HYPERTENSION
     Dosage: 20 MG
     Route: 048
  6. LOSARTAN [Concomitant]
     Indication: HYPERTENSION
     Route: 048

REACTIONS (1)
  - PULMONARY EMBOLISM [None]
